FAERS Safety Report 17697481 (Version 2)
Quarter: 2020Q2

REPORT INFORMATION
  Report Type: Spontaneous
  Country: US (occurrence: US)
  Receive Date: 20200423
  Receipt Date: 20200522
  Transmission Date: 20200714
  Serious: Yes (Death, Hospitalization, Other)
  Sender: FDA-Public Use
  Company Number: US-UNITED THERAPEUTICS-UNT-2020-005428

PATIENT
  Age: 56 Year
  Sex: Female
  Weight: 77.7 kg

DRUGS (5)
  1. LETAIRIS [Concomitant]
     Active Substance: AMBRISENTAN
     Indication: PRODUCT USED FOR UNKNOWN INDICATION
     Dosage: UNK
     Route: 065
  2. UPTRAVI [Suspect]
     Active Substance: SELEXIPAG
     Indication: PRODUCT USED FOR UNKNOWN INDICATION
     Dosage: UNK
     Route: 065
  3. TADALAFIL. [Concomitant]
     Active Substance: TADALAFIL
     Indication: PRODUCT USED FOR UNKNOWN INDICATION
     Dosage: UNK
     Route: 065
  4. REMODULIN [Suspect]
     Active Substance: TREPROSTINIL
     Indication: PULMONARY ARTERIAL HYPERTENSION
     Dosage: UNK, CONTINUING
     Route: 058
     Dates: start: 20200401
  5. REMODULIN [Suspect]
     Active Substance: TREPROSTINIL
     Dosage: 0.0284 ?G/KG, CONTINUING
     Route: 058
     Dates: start: 202004

REACTIONS (5)
  - Urine output decreased [Unknown]
  - Oedema [Unknown]
  - Dyspnoea [Unknown]
  - Death [Fatal]
  - Pericardial effusion [Unknown]

NARRATIVE: CASE EVENT DATE: 202004
